FAERS Safety Report 5935394-9 (Version None)
Quarter: 2008Q4

REPORT INFORMATION
  Report Type: 
  Country: None (occurrence: None)
  Receive Date: 20081028
  Receipt Date: 20081017
  Transmission Date: 20090506
  Serious: Yes (Hospitalization)
  Sender: FDA-Public Use
  Company Number: 2008AP002797

PATIENT
  Age: 34 Year
  Sex: Male

DRUGS (8)
  1. OMEPRAZOLE [Suspect]
     Dosage: 20 MG; BID PO, 20 MG; CAP; PO; BID
     Route: 048
     Dates: start: 20081008, end: 20081009
  2. METHYLPREDNISOLONE 16MG TAB [Concomitant]
  3. POTASSIUM CHLORIDE [Concomitant]
  4. ACETAMINOPHEN [Concomitant]
  5. METHYLPREDNISOLONE 16MG TAB [Concomitant]
  6. DIPYRONE TAB [Concomitant]
  7. BISULEPIN HYDROCHLORIDE (BISULEPIN HYDROCHLORIDE) [Concomitant]
  8. OMEPRAZOLE [Concomitant]

REACTIONS (3)
  - BODY TEMPERATURE INCREASED [None]
  - PRURITUS GENERALISED [None]
  - RASH GENERALISED [None]
